FAERS Safety Report 9722475 (Version 2)
Quarter: 2013Q4

REPORT INFORMATION
  Report Type: Report from Study
  Country: AU (occurrence: AU)
  Receive Date: 20131202
  Receipt Date: 20131202
  Transmission Date: 20140711
  Serious: Yes (Life-Threatening, Disabling, Other)
  Sender: FDA-Public Use
  Company Number: PHHY2013AU129541

PATIENT
  Age: 36 Year
  Sex: Male
  Weight: 75.6 kg

DRUGS (6)
  1. CLOZARIL [Suspect]
     Indication: SCHIZOPHRENIA
     Dosage: 475 MG, NOCTE
     Route: 048
     Dates: start: 20070129, end: 20131106
  2. CLOZARIL [Suspect]
     Dosage: UNK UKN, UNK
  3. VENLAFAXINE [Concomitant]
     Indication: ANXIETY
     Dosage: 150 MG MORNING
     Route: 048
  4. VENLAFAXINE [Concomitant]
     Indication: DEPRESSIVE SYMPTOM
  5. AMISULPRIDE [Concomitant]
  6. OXYBUTYNIN [Concomitant]
     Indication: SALIVARY HYPERSECRETION
     Dosage: 5 MG, UNK
     Route: 048

REACTIONS (7)
  - Eating disorder [Recovering/Resolving]
  - Pancytopenia [Unknown]
  - Leukopenia [Recovered/Resolved]
  - Thrombocytopenia [Not Recovered/Not Resolved]
  - Weight decreased [Unknown]
  - Blood pH decreased [Unknown]
  - Platelet count decreased [Unknown]
